FAERS Safety Report 15061002 (Version 1)
Quarter: 2018Q2

REPORT INFORMATION
  Report Type: Spontaneous
  Country: US (occurrence: US)
  Receive Date: 20180625
  Receipt Date: 20180625
  Transmission Date: 20180711
  Serious: No
  Sender: FDA-Public Use
  Company Number: US-ROCHE-1961042

PATIENT
  Sex: Female
  Weight: 51.76 kg

DRUGS (3)
  1. XELODA [Suspect]
     Active Substance: CAPECITABINE
     Indication: BREAST CANCER
     Route: 065
  2. METHIMAZOLE. [Concomitant]
     Active Substance: METHIMAZOLE
     Dosage: 1/2 OF 5 MG TABLET, 2.5 MG DAILY
     Route: 048
  3. IBRANCE [Suspect]
     Active Substance: PALBOCICLIB
     Indication: BREAST CANCER
     Dosage: 125 MG FOR 21 DAYS ON, THEN 7 DAYS OFF
     Route: 065

REACTIONS (10)
  - Nausea [Not Recovered/Not Resolved]
  - Fatigue [Not Recovered/Not Resolved]
  - Nail discomfort [Unknown]
  - Erythema [Unknown]
  - Lip dry [Unknown]
  - Lacrimation increased [Not Recovered/Not Resolved]
  - Dry mouth [Unknown]
  - Ocular hyperaemia [Not Recovered/Not Resolved]
  - Skin fissures [Unknown]
  - Alopecia [Not Recovered/Not Resolved]

NARRATIVE: CASE EVENT DATE: 2016
